FAERS Safety Report 4306956-X (Version None)
Quarter: 2004Q1

REPORT INFORMATION
  Report Type: 
  Country: None (occurrence: None)
  Receive Date: 20040227
  Receipt Date: 20040209
  Transmission Date: 20041129
  Serious: Yes (Death)
  Sender: FDA-Public Use
  Company Number: WAES 0402USA01047

PATIENT
  Age: 10 Day
  Sex: Male
  Weight: 1 kg

DRUGS (10)
  1. [THERAPY UNSPECIFIED] [Concomitant]
     Indication: LUNG DISORDER
     Dates: start: 19981119, end: 19981101
  2. AMIKACIN SULFATE [Concomitant]
     Dates: start: 19981119, end: 19981101
  3. AMPICILLIN [Concomitant]
     Dates: start: 19981119, end: 19981101
  4. BLOOD, PLASMA [Concomitant]
     Dates: start: 19981119, end: 19981101
  5. CARTEOLOL HYDROCHLORIDE [Concomitant]
     Dates: start: 19981119, end: 19981101
  6. CEFTAZIDIME [Concomitant]
     Dates: start: 19981101, end: 19981101
  7. DOPAMINE HYDROCHLORIDE [Concomitant]
     Dates: start: 19981119, end: 19981101
  8. FENTANYL CITRATE [Concomitant]
     Dates: start: 19981101, end: 19981101
  9. INDOCIN I.V. [Suspect]
     Indication: PATENT DUCTUS ARTERIOSUS
     Route: 051
     Dates: start: 19981120, end: 19981120
  10. VANCOMYCIN [Concomitant]
     Dates: start: 19981101, end: 19981101

REACTIONS (2)
  - GASTROINTESTINAL PERFORATION [None]
  - PERITONITIS [None]
